FAERS Safety Report 5538259-X (Version None)
Quarter: 2007Q4

REPORT INFORMATION
  Report Type: 
  Country: None (occurrence: None)
  Receive Date: 20071123
  Receipt Date: 20070911
  Transmission Date: 20080405
  Serious: Yes (Other)
  Sender: FDA-Public Use
  Company Number: US-JNJFOC-20070801501

PATIENT
  Age: 66 Year
  Sex: Male
  Weight: 68.9467 kg

DRUGS (3)
  1. LEVAQUIN [Suspect]
     Indication: PROSTATE INFECTION
     Dosage: 500 MG, IN 1 DAY
     Dates: start: 20070727, end: 20070730
  2. LIPITOR             (ATORVASTATIN) UNSPECIFIED [Concomitant]
  3. LOTENSIN                  (BENAZEPRIL HYDROCHLORIDE) UNSPECIFIED [Concomitant]

REACTIONS (1)
  - TENDONITIS [None]
